FAERS Safety Report 9289424 (Version 1)
Quarter: 2013Q2

REPORT INFORMATION
  Report Type: Spontaneous
  Country: GB (occurrence: GB)
  Receive Date: 20130514
  Receipt Date: 20130514
  Transmission Date: 20140414
  Serious: Yes (Hospitalization)
  Sender: FDA-Public Use
  Company Number: GB-MYLANLABS-2013S1009456

PATIENT
  Age: 49 Year
  Sex: Female

DRUGS (12)
  1. BISOPROLOL [Suspect]
     Indication: PRODUCT USED FOR UNKNOWN INDICATION
     Route: 048
     Dates: start: 20130124, end: 20130124
  2. CLOPIDOGREL [Suspect]
     Indication: PRODUCT USED FOR UNKNOWN INDICATION
     Route: 048
     Dates: start: 20130124, end: 20130124
  3. FLUOXETINE [Suspect]
     Indication: PRODUCT USED FOR UNKNOWN INDICATION
     Route: 048
     Dates: start: 20130124, end: 20130124
  4. ASPIRIN [Suspect]
     Indication: PRODUCT USED FOR UNKNOWN INDICATION
     Route: 048
  5. FUROSEMIDE [Suspect]
     Indication: PRODUCT USED FOR UNKNOWN INDICATION
     Route: 048
     Dates: start: 20130124, end: 20130124
  6. IBUPROFEN [Suspect]
     Indication: PRODUCT USED FOR UNKNOWN INDICATION
     Route: 048
     Dates: start: 20130124, end: 20130124
  7. PARACETAMOL [Suspect]
     Indication: PRODUCT USED FOR UNKNOWN INDICATION
     Route: 048
     Dates: start: 20130124, end: 20130124
  8. RAMIPRIL [Suspect]
     Indication: PRODUCT USED FOR UNKNOWN INDICATION
     Route: 048
     Dates: start: 20130124, end: 20130124
  9. ZAPONEX [Suspect]
     Indication: SCHIZOPHRENIA
     Route: 048
     Dates: start: 20041014, end: 20130129
  10. ZAPONEX [Suspect]
     Indication: SCHIZOPHRENIA
     Route: 048
     Dates: start: 20130304
  11. GAVISCON [Concomitant]
     Indication: DYSPEPSIA
     Route: 048
  12. LANSOPRAZOLE [Concomitant]
     Indication: DYSPEPSIA
     Route: 048

REACTIONS (7)
  - Intentional overdose [Recovered/Resolved]
  - Renal failure acute [Recovered/Resolved]
  - Confusional state [Unknown]
  - Agitation [Unknown]
  - Alanine aminotransferase increased [Recovered/Resolved]
  - Hypercholesterolaemia [Not Recovered/Not Resolved]
  - Faecal incontinence [Unknown]
